FAERS Safety Report 6892510-2 (Version None)
Quarter: 2010Q3

REPORT INFORMATION
  Report Type: 
  Country: None (occurrence: None)
  Receive Date: 20100731
  Receipt Date: 20080610
  Transmission Date: 20110219
  Serious: Yes (Other)
  Sender: FDA-Public Use
  Company Number: US-PFIZER INC-2004094266

PATIENT
  Sex: Female
  Weight: 65.8 kg

DRUGS (2)
  1. NEURONTIN [Suspect]
     Indication: NEUROPATHY PERIPHERAL
     Dates: end: 20050101
  2. LYRICA [Suspect]
     Indication: NEUROPATHY PERIPHERAL
     Dates: start: 20050101

REACTIONS (7)
  - ARTHROPATHY [None]
  - DRUG INEFFECTIVE [None]
  - ENDODONTIC PROCEDURE [None]
  - HYPOAESTHESIA [None]
  - PERIPHERAL COLDNESS [None]
  - TOOTH FRACTURE [None]
  - WEIGHT INCREASED [None]
